FAERS Safety Report 21433874 (Version 2)
Quarter: 2022Q4

REPORT INFORMATION
  Report Type: Other
  Country: None (occurrence: US)
  Receive Date: 20221010
  Receipt Date: 20221012
  Transmission Date: 20230113
  Serious: Yes (Other)
  Sender: FDA-Public Use
  Company Number: US-Innogenix, LLC-2133618

PATIENT
  Age: 47 Year
  Sex: Male

DRUGS (1)
  1. PILOCARPINE HYDROCHLORIDE [Suspect]
     Active Substance: PILOCARPINE HYDROCHLORIDE
     Indication: Presbyopia
     Route: 065

REACTIONS (2)
  - Retinal detachment [Recovered/Resolved]
  - Product use in unapproved indication [Unknown]
